FAERS Safety Report 10472228 (Version 1)
Quarter: 2014Q3

REPORT INFORMATION
  Report Type: Spontaneous
  Country: ES (occurrence: ES)
  Receive Date: 20140924
  Receipt Date: 20140924
  Transmission Date: 20150326
  Serious: Yes (Other)
  Sender: FDA-Public Use
  Company Number: ES-ROCHE-1465666

PATIENT
  Age: 52 Year
  Sex: Female
  Weight: 72 kg

DRUGS (4)
  1. IRINOTECAN [Suspect]
     Active Substance: IRINOTECAN
     Indication: COLON CANCER
     Dosage: 309 MG, GLUCOSE 5%, 500 ML, 90 MIN
     Route: 065
     Dates: start: 20140310
  2. CALCIUM FOLINATE [Suspect]
     Active Substance: LEUCOVORIN CALCIUM
     Indication: COLON CANCER
     Dosage: 10 MG/ML, GLUCOSE 5 %, 500 ML, 90 MIN
     Route: 065
     Dates: start: 20140310
  3. AVASTIN [Suspect]
     Active Substance: BEVACIZUMAB
     Indication: BREAST CANCER
     Dosage: 25 MG /ML, 360 MG , 100ML IN 60 MIN
     Route: 065
     Dates: start: 20140107
  4. FLUOROURACIL. [Suspect]
     Active Substance: FLUOROURACIL
     Indication: COLON CANCER
     Dosage: 100 ML IN 46 HR
     Route: 065
     Dates: start: 20131202

REACTIONS (4)
  - Muscular weakness [Recovered/Resolved]
  - Fall [Unknown]
  - Musculoskeletal stiffness [Recovered/Resolved]
  - Depressed level of consciousness [Recovered/Resolved]

NARRATIVE: CASE EVENT DATE: 20140825
